FAERS Safety Report 6724844-6 (Version None)
Quarter: 2010Q2

REPORT INFORMATION
  Report Type: 
  Country: None (occurrence: None)
  Receive Date: 20100513
  Receipt Date: 20100513
  Transmission Date: 20101027
  Serious: Yes (Other)
  Sender: FDA-Public Use
  Company Number: None

PATIENT
  Age: 73 Year
  Sex: Female
  Weight: 81.6475 kg

DRUGS (5)
  1. NEULASTA [Suspect]
     Indication: CHEMOTHERAPY
     Dosage: 6MG Q21DAYS SQ
     Route: 058
     Dates: start: 20100319, end: 20100319
  2. NEULASTA [Suspect]
     Indication: NEUTROPENIA
     Dosage: 6MG Q21DAYS SQ
     Route: 058
     Dates: start: 20100319, end: 20100319
  3. NEULASTA [Suspect]
     Dosage: 6MG Q21 DAYS SQ
     Route: 058
     Dates: start: 20100507, end: 20100507
  4. ETOPOSIDE [Concomitant]
  5. CARBOPLATIN [Concomitant]

REACTIONS (4)
  - ERYTHEMA [None]
  - INFECTION [None]
  - SKIN REACTION [None]
  - SKIN WARM [None]
